FAERS Safety Report 10896354 (Version 1)
Quarter: 2015Q1

REPORT INFORMATION
  Report Type: Spontaneous
  Country: US (occurrence: None)
  Receive Date: 20150302
  Receipt Date: 20150302
  Transmission Date: 20150721
  Serious: No
  Sender: FDA-Public Use
  Company Number: None

PATIENT
  Sex: Female

DRUGS (1)
  1. PROLIA [Suspect]
     Active Substance: DENOSUMAB
     Dates: start: 201308

REACTIONS (6)
  - Blood pressure increased [None]
  - Arthralgia [None]
  - Myalgia [None]
  - Infected bites [None]
  - Peripheral swelling [None]
  - Joint swelling [None]

NARRATIVE: CASE EVENT DATE: 201308
